FAERS Safety Report 10727120 (Version 2)
Quarter: 2015Q1

REPORT INFORMATION
  Report Type: Spontaneous
  Country: AT (occurrence: AT)
  Receive Date: 20150121
  Receipt Date: 20150127
  Transmission Date: 20150721
  Serious: Yes (Other)
  Sender: FDA-Public Use
  Company Number: AT-009507513-1501AUT006961

PATIENT
  Sex: Female

DRUGS (4)
  1. AMBISOME [Concomitant]
     Active Substance: AMPHOTERICIN B
     Dosage: UNK
     Dates: end: 201501
  2. NOXAFIL [Suspect]
     Active Substance: POSACONAZOLE
     Dosage: 1 X 300 MG
     Route: 042
     Dates: start: 20141205, end: 20141205
  3. NOXAFIL [Suspect]
     Active Substance: POSACONAZOLE
     Dosage: 1 X 300 MG
     Route: 042
     Dates: start: 20141204, end: 20141204
  4. TRITICO [Concomitant]
     Dosage: 50 MG
     Dates: start: 20141202

REACTIONS (3)
  - Loss of consciousness [Recovered/Resolved]
  - Generalised tonic-clonic seizure [Recovered/Resolved]
  - Partial seizures with secondary generalisation [Recovered/Resolved]

NARRATIVE: CASE EVENT DATE: 20141205
